FAERS Safety Report 8471891-2 (Version None)
Quarter: 2012Q2

REPORT INFORMATION
  Report Type: 
  Country: None (occurrence: None)
  Receive Date: 20120323
  Receipt Date: 20111024
  Transmission Date: 20120825
  Serious: Yes (Disabling, Other)
  Sender: FDA-Public Use
  Company Number: 163-21880-11100276

PATIENT
  Age: 44 Year
  Sex: Male

DRUGS (4)
  1. COUMADIN (WARFARNI SODIUM) [Concomitant]
  2. REVLIMID [Suspect]
     Indication: MULTIPLE MYELOMA
     Dosage: 10 MG, X 21 DAYS, PO ; 10 MG, QD, PO ; 10 MG, QD, PO
     Route: 048
     Dates: start: 20080926, end: 20090901
  3. REVLIMID [Suspect]
     Indication: MULTIPLE MYELOMA
     Dosage: 10 MG, X 21 DAYS, PO ; 10 MG, QD, PO ; 10 MG, QD, PO
     Route: 048
     Dates: start: 20100901, end: 20110101
  4. REVLIMID [Suspect]
     Indication: MULTIPLE MYELOMA
     Dosage: 10 MG, X 21 DAYS, PO ; 10 MG, QD, PO ; 10 MG, QD, PO
     Route: 048
     Dates: start: 20110601

REACTIONS (1)
  - MULTIPLE MYELOMA [None]
